FAERS Safety Report 21682507 (Version 1)
Quarter: 2022Q4

REPORT INFORMATION
  Report Type: Spontaneous
  Country: CA (occurrence: CA)
  Receive Date: 20221205
  Receipt Date: 20221205
  Transmission Date: 20230112
  Serious: Yes (Other)
  Sender: FDA-Public Use
  Company Number: CA-JUBILANT CADISTA PHARMACEUTICALS-2022JUB00459

PATIENT
  Age: 25 Year
  Sex: Male

DRUGS (2)
  1. PREDNISONE [Suspect]
     Active Substance: PREDNISONE
     Indication: Chronic lymphocytic inflammation with pontine perivascular enhancement responsive to steroids
     Dosage: 80 MG, 1X/DAY
     Route: 065
  2. PREDNISONE [Suspect]
     Active Substance: PREDNISONE
     Dosage: TAPER, 10 MG WEEK, COULD NOT WEAN LOWER THAN 30 MG DAILY
     Route: 065

REACTIONS (5)
  - Anxiety [Unknown]
  - Weight increased [Recovering/Resolving]
  - Glucose tolerance impaired [Not Recovered/Not Resolved]
  - Bone density decreased [Unknown]
  - Tremor [Unknown]
